FAERS Safety Report 13305409 (Version 1)
Quarter: 2017Q1

REPORT INFORMATION
  Report Type: Spontaneous
  Country: US (occurrence: US)
  Receive Date: 20170308
  Receipt Date: 20170308
  Transmission Date: 20170428
  Serious: No
  Sender: FDA-Public Use
  Company Number: US-BAUSCH-BL-2016-017719

PATIENT
  Age: 64 Year
  Sex: Male

DRUGS (4)
  1. LIALDA [Concomitant]
     Active Substance: MESALAMINE
     Indication: COLITIS
     Route: 048
  2. UCERIS [Suspect]
     Active Substance: BUDESONIDE
     Indication: COLITIS
     Route: 048
     Dates: start: 20160613
  3. UCERIS [Suspect]
     Active Substance: BUDESONIDE
     Indication: COLITIS
     Route: 048
     Dates: start: 20160613, end: 2016
  4. UCERIS [Suspect]
     Active Substance: BUDESONIDE
     Route: 048
     Dates: start: 2016

REACTIONS (2)
  - Drug ineffective [Unknown]
  - Treatment noncompliance [Unknown]
